FAERS Safety Report 6373178-0 (Version None)
Quarter: 2009Q3

REPORT INFORMATION
  Report Type: 
  Country: None (occurrence: None)
  Receive Date: 20090924
  Receipt Date: 20090105
  Transmission Date: 20100115
  Serious: No
  Sender: FDA-Public Use
  Company Number: US-ASTRAZENECA-2009UW00289

PATIENT
  Sex: Male
  Weight: 115.7 kg

DRUGS (1)
  1. SEROQUEL [Suspect]
     Indication: BIPOLAR DISORDER
     Dosage: 600 MG AT NIGHT AND 100 MG IN THE MORNING
     Route: 048

REACTIONS (1)
  - DRUG SCREEN POSITIVE [None]
